FAERS Safety Report 17144180 (Version 2)
Quarter: 2019Q4

REPORT INFORMATION
  Report Type: Spontaneous
  Country: ES (occurrence: ES)
  Receive Date: 20191212
  Receipt Date: 20191217
  Transmission Date: 20200122
  Serious: Yes (Death, Other)
  Sender: FDA-Public Use
  Company Number: ES-PFIZER INC-2019535051

PATIENT
  Age: 71 Year
  Sex: Male

DRUGS (9)
  1. MEROPENEM. [Suspect]
     Active Substance: MEROPENEM
     Indication: HAEMATOMA INFECTION
     Dosage: UNK
     Route: 065
     Dates: start: 20170511
  2. DAPTOMYCIN. [Suspect]
     Active Substance: DAPTOMYCIN
     Indication: HAEMATOMA INFECTION
     Dosage: UNK
     Route: 065
     Dates: start: 20170511, end: 201706
  3. CEFTOLOZANE/TAZOBACTAM [Suspect]
     Active Substance: CEFTOLOZANE SULFATE\TAZOBACTAM SODIUM
     Indication: EVIDENCE BASED TREATMENT
     Dosage: UNK
     Route: 065
     Dates: start: 2017
  4. VANCOMYCIN [Suspect]
     Active Substance: VANCOMYCIN
     Indication: ABDOMINAL INFECTION
     Dosage: UNK
     Route: 065
     Dates: start: 2017
  5. LINEZOLID. [Suspect]
     Active Substance: LINEZOLID
     Indication: EVIDENCE BASED TREATMENT
     Dosage: UNK
     Route: 065
     Dates: start: 2017
  6. ANIDULAFUNGIN [Suspect]
     Active Substance: ANIDULAFUNGIN
     Indication: ABDOMINAL INFECTION
     Dosage: UNK
     Route: 065
     Dates: start: 2017
  7. DAPTOMYCIN. [Suspect]
     Active Substance: DAPTOMYCIN
     Indication: EVIDENCE BASED TREATMENT
     Dosage: UNK
     Route: 065
     Dates: start: 20170625, end: 2017
  8. FLUCONAZOLE. [Suspect]
     Active Substance: FLUCONAZOLE
     Indication: ABDOMINAL INFECTION
     Dosage: UNK
     Route: 065
     Dates: start: 2017
  9. CASPOFUNGIN ACETATE. [Suspect]
     Active Substance: CASPOFUNGIN ACETATE
     Indication: CANDIDA INFECTION
     Dosage: UNK
     Route: 065
     Dates: start: 2017, end: 2017

REACTIONS (13)
  - Sepsis [Unknown]
  - Aortoenteric fistula [Unknown]
  - Respiratory tract infection [Unknown]
  - Haemodynamic instability [Unknown]
  - Upper gastrointestinal haemorrhage [Unknown]
  - Hypoperfusion [Unknown]
  - Rectal perforation [Unknown]
  - Intestinal ischaemia [Unknown]
  - Death [Fatal]
  - Spinal cord disorder [Unknown]
  - Multiple organ dysfunction syndrome [Unknown]
  - Systemic inflammatory response syndrome [Unknown]
  - Pneumonia [Unknown]

NARRATIVE: CASE EVENT DATE: 2017
